FAERS Safety Report 19751822 (Version 1)
Quarter: 2021Q3

REPORT INFORMATION
  Report Type: Spontaneous
  Country: US (occurrence: US)
  Receive Date: 20210826
  Receipt Date: 20210826
  Transmission Date: 20211014
  Serious: Yes (Other)
  Sender: FDA-Public Use
  Company Number: ALC2021US004931

PATIENT
  Sex: Male

DRUGS (2)
  1. DUREZOL [Suspect]
     Active Substance: DIFLUPREDNATE
     Indication: PRODUCT USED FOR UNKNOWN INDICATION
     Route: 065
  2. OLOPATADINE. [Suspect]
     Active Substance: OLOPATADINE
     Indication: PRODUCT USED FOR UNKNOWN INDICATION
     Route: 065

REACTIONS (5)
  - Visual impairment [Unknown]
  - Rhinorrhoea [Unknown]
  - Macular degeneration [Unknown]
  - Dyschromatopsia [Unknown]
  - Sinusitis [Unknown]
